FAERS Safety Report 24652520 (Version 2)
Quarter: 2024Q4

REPORT INFORMATION
  Report Type: Spontaneous
  Country: SK (occurrence: SK)
  Receive Date: 20241122
  Receipt Date: 20241202
  Transmission Date: 20250114
  Serious: No
  Sender: MERCK
  Company Number: SK-GLENMARK PHARMACEUTICALS-2024GMK094744

PATIENT
  Age: 67 Year
  Sex: Female

DRUGS (3)
  1. POSACONAZOLE [Suspect]
     Active Substance: POSACONAZOLE
     Indication: Acute myeloid leukaemia
     Dosage: UNK
     Route: 065
     Dates: start: 2022, end: 20221205
  2. VENETOCLAX [Suspect]
     Active Substance: VENETOCLAX
     Indication: Acute myeloid leukaemia
     Dosage: D1-14
     Route: 048
  3. AZACITIDINE [Concomitant]
     Active Substance: AZACITIDINE
     Indication: Acute myeloid leukaemia
     Dosage: D1-7
     Route: 065

REACTIONS (1)
  - Labelled drug-drug interaction issue [Unknown]
